FAERS Safety Report 25067861 (Version 1)
Quarter: 2025Q1

REPORT INFORMATION
  Report Type: Report from Study
  Country: US (occurrence: US)
  Receive Date: 20250312
  Receipt Date: 20250312
  Transmission Date: 20250409
  Serious: Yes (Other)
  Sender: DR REDDYS
  Company Number: US-DRL-USA-USA/2025/03/003501

PATIENT
  Age: 10 Year
  Sex: Female
  Weight: 52.98 kg

DRUGS (3)
  1. JAVYGTOR [Suspect]
     Active Substance: SAPROPTERIN DIHYDROCHLORIDE
     Indication: Hyperphenylalaninaemia
     Dosage: DISSOLVE 1,000 MG (TWO 500 MG POWDER PACKETS) IN 4 TO 8 OUNCES OF WATER OR APPLE JUICE AND TAKE 1 (O
     Route: 048
  2. JAVYGTOR [Suspect]
     Active Substance: SAPROPTERIN DIHYDROCHLORIDE
     Indication: Phenylketonuria
  3. FLUTICASONE PROPIONATE [Concomitant]
     Active Substance: FLUTICASONE PROPIONATE
     Indication: Product used for unknown indication
     Route: 065

REACTIONS (1)
  - Tonsillar disorder [Unknown]
